FAERS Safety Report 17209985 (Version 1)
Quarter: 2019Q4

REPORT INFORMATION
  Report Type: Spontaneous
  Country: US (occurrence: US)
  Receive Date: 20191227
  Receipt Date: 20191227
  Transmission Date: 20200122
  Serious: No
  Sender: FDA-Public Use
  Company Number: US-ASTRAZENECA-2019SE72584

PATIENT
  Sex: Female

DRUGS (4)
  1. BRILINTA [Suspect]
     Active Substance: TICAGRELOR
     Indication: STENT PLACEMENT
     Route: 048
     Dates: start: 20190412, end: 20190509
  2. PLAVIX [Concomitant]
     Active Substance: CLOPIDOGREL BISULFATE
  3. METOPROLOL. [Suspect]
     Active Substance: METOPROLOL
     Indication: STENT PLACEMENT
     Route: 048
     Dates: start: 20190412
  4. LIPITOR [Concomitant]
     Active Substance: ATORVASTATIN CALCIUM
     Indication: STENT PLACEMENT
     Dosage: 80.0MG UNKNOWN
     Route: 048
     Dates: start: 20190412, end: 20190512

REACTIONS (4)
  - Jaundice [Unknown]
  - Dyspnoea [Unknown]
  - Nausea [Unknown]
  - Pain [Unknown]
